FAERS Safety Report 9044874 (Version 1)
Quarter: 2013Q1

REPORT INFORMATION
  Report Type: Report from Study
  Country: GB (occurrence: GB)
  Receive Date: 20130130
  Receipt Date: 20130130
  Transmission Date: 20140127
  Serious: Yes (Other)
  Sender: FDA-Public Use
  Company Number: GB-VIIV HEALTHCARE LIMITED-A1009824A

PATIENT
  Age: 29 Year
  Sex: Female

DRUGS (2)
  1. EPZICOM [Suspect]
     Indication: ANTIVIRAL TREATMENT
     Dosage: 1TAB PER DAY
     Route: 048
     Dates: start: 20110920
  2. SUSTIVA [Suspect]
     Indication: ANTIVIRAL TREATMENT
     Dosage: 600MG PER DAY
     Route: 048
     Dates: start: 20110920

REACTIONS (2)
  - Abortion spontaneous [Unknown]
  - Exposure during pregnancy [Unknown]
